FAERS Safety Report 10266286 (Version 2)
Quarter: 2014Q4

REPORT INFORMATION
  Report Type: Spontaneous
  Country: DE (occurrence: DE)
  Receive Date: 20140627
  Receipt Date: 20141103
  Transmission Date: 20150528
  Serious: Yes (Other)
  Sender: FDA-Public Use
  Company Number: DE-ALLERGAN-1414171US

PATIENT
  Age: 60 Year
  Sex: Male

DRUGS (1)
  1. ACULAR [Suspect]
     Active Substance: KETOROLAC TROMETHAMINE
     Indication: MACULAR OEDEMA
     Dosage: 1 GTT, QID, LEFT EYE
     Route: 047
     Dates: start: 201405, end: 20140621

REACTIONS (3)
  - Retinal tear [Not Recovered/Not Resolved]
  - Off label use [Unknown]
  - Vitreous haemorrhage [Not Recovered/Not Resolved]

NARRATIVE: CASE EVENT DATE: 201405
